FAERS Safety Report 6258231-4 (Version None)
Quarter: 2009Q3

REPORT INFORMATION
  Report Type: 
  Country: None (occurrence: None)
  Receive Date: 20090702
  Receipt Date: 20090624
  Transmission Date: 20100115
  Serious: Yes (Death)
  Sender: FDA-Public Use
  Company Number: 1000007054

PATIENT

DRUGS (2)
  1. DINOPROSTONE (DINOPROSTONE) (VAGINAL INSERT) [Suspect]
     Dosage: TRANSPLACENTAL
     Route: 064
     Dates: start: 20090522
  2. OXYTOCIN [Concomitant]

REACTIONS (3)
  - FOETAL DISTRESS SYNDROME [None]
  - INTRA-UTERINE DEATH [None]
  - RESPIRATORY DISTRESS [None]
